FAERS Safety Report 10728675 (Version 1)
Quarter: 2015Q1

REPORT INFORMATION
  Report Type: Report from Study
  Country: US (occurrence: US)
  Receive Date: 20150122
  Receipt Date: 20150122
  Transmission Date: 20150721
  Serious: Yes (Other)
  Sender: FDA-Public Use
  Company Number: US-AMGEN-USASL2015004276

PATIENT
  Age: 45 Year
  Sex: Female

DRUGS (5)
  1. METHOTREXATE [Concomitant]
     Active Substance: METHOTREXATE
     Dosage: UNK MG, QWK
     Route: 048
  2. OTEZLA [Concomitant]
     Active Substance: APREMILAST
     Dosage: UNK
  3. ENBREL [Suspect]
     Active Substance: ETANERCEPT
     Indication: PSORIASIS
  4. STELARA [Concomitant]
     Active Substance: USTEKINUMAB
     Dosage: UNK
  5. ENBREL [Suspect]
     Active Substance: ETANERCEPT
     Indication: PSORIATIC ARTHROPATHY
     Dosage: UNK MG, QWK
     Route: 065
     Dates: start: 201311, end: 201401

REACTIONS (8)
  - Abdominal pain [Recovered/Resolved]
  - Arthralgia [Recovered/Resolved]
  - Psoriasis [Recovered/Resolved]
  - Eye swelling [Recovered/Resolved]
  - Insomnia [Recovered/Resolved]
  - Uterine polyp [Recovered/Resolved]
  - Tooth disorder [Not Recovered/Not Resolved]
  - Amenorrhoea [Recovered/Resolved]

NARRATIVE: CASE EVENT DATE: 201312
